FAERS Safety Report 9399399 (Version 1)
Quarter: 2013Q3

REPORT INFORMATION
  Report Type: Spontaneous
  Country: US (occurrence: US)
  Receive Date: 20130715
  Receipt Date: 20130715
  Transmission Date: 20140515
  Serious: No
  Sender: FDA-Public Use
  Company Number: US-PFIZER INC-2013204113

PATIENT
  Age: 72 Year
  Sex: Male

DRUGS (13)
  1. SUTENT [Suspect]
     Indication: RENAL CANCER
     Dosage: 12.5 MG, UNK
     Dates: start: 20130314
  2. AMBIEN [Concomitant]
     Dosage: UNK
  3. AMPICILLIN [Concomitant]
     Dosage: UNK
  4. AVODART [Concomitant]
     Dosage: UNK
  5. BRIMONIDINE TARTRATE [Concomitant]
     Dosage: UNK
  6. CARVEDILOL [Concomitant]
     Dosage: UNK
  7. CIPRO [Concomitant]
     Dosage: UNK
  8. COUMADIN [Concomitant]
     Dosage: UNK
  9. DULCOLAX [Concomitant]
     Dosage: UNK
  10. FENTANYL [Concomitant]
     Dosage: UNK
  11. FERREX 150 FORTE [Concomitant]
     Dosage: UNK
  12. FINASTERIDE [Concomitant]
     Dosage: UNK
  13. FLAGYL [Concomitant]
     Dosage: UNK

REACTIONS (2)
  - Disease progression [Unknown]
  - Renal cancer [Unknown]
